FAERS Safety Report 23422231 (Version 1)
Quarter: 2024Q1

REPORT INFORMATION
  Report Type: Spontaneous
  Country: US (occurrence: None)
  Receive Date: 20240118
  Receipt Date: 20240118
  Transmission Date: 20240409
  Serious: No
  Sender: FDA-Public Use
  Company Number: None

PATIENT
  Age: 53 Year
  Sex: Female
  Weight: 49.5 kg

DRUGS (13)
  1. MOTEGRITY [Suspect]
     Active Substance: PRUCALOPRIDE SUCCINATE
     Indication: Constipation
     Dosage: OTHER QUANTITY : 1 TABLET(S);?FREQUENCY : DAILY;?
     Route: 048
     Dates: start: 20231210, end: 20240111
  2. MOTEGRITY [Suspect]
     Active Substance: PRUCALOPRIDE SUCCINATE
     Indication: Abdominal distension
  3. IBSRELA [Concomitant]
     Active Substance: TENAPANOR HYDROCHLORIDE
  4. ISOSORBIDE [Concomitant]
     Active Substance: ISOSORBIDE
  5. ROSUVASTATIN [Concomitant]
     Active Substance: ROSUVASTATIN
  6. ESTRADIOL\NORETHINDRONE ACETATE [Concomitant]
     Active Substance: ESTRADIOL\NORETHINDRONE ACETATE
  7. VERAPAMIL [Concomitant]
     Active Substance: VERAPAMIL HYDROCHLORIDE
  8. SUMATRIPTAN [Concomitant]
     Active Substance: SUMATRIPTAN
  9. VITAMINS [Concomitant]
     Active Substance: VITAMINS
  10. ASTAXANTHIN [Concomitant]
     Active Substance: ASTAXANTHIN
  11. PROBIOTICS NOS [Concomitant]
     Active Substance: PROBIOTICS NOS
  12. VITAMIN B12 [Concomitant]
     Active Substance: CYANOCOBALAMIN
  13. HERBALS\TURMERIC [Concomitant]
     Active Substance: HERBALS\TURMERIC

REACTIONS (1)
  - Micturition urgency [None]

NARRATIVE: CASE EVENT DATE: 20231210
